FAERS Safety Report 7419436 (Version 7)
Quarter: 2013Q4

REPORT INFORMATION
  Report Type: Spontaneous
  Country: US (occurrence: US)
  Receive Date: 20100615
  Receipt Date: 20131106
  Transmission Date: 20140711
  Serious: Yes (Hospitalization, Other)
  Sender: FDA-Public Use
  Company Number: US-BAYER-201024534NA

PATIENT
  Age: 31 Year
  Sex: Female
  Weight: 65.76 kg

DRUGS (7)
  1. MIRENA [Suspect]
     Indication: CONTRACEPTION
     Dosage: 20 MCG/24HR, CONT
     Route: 015
     Dates: start: 200604, end: 20091210
  2. FENTANYL [Concomitant]
     Dosage: 50 MCG/ML 2 ML AMP, 2 ITEMS
     Route: 065
     Dates: start: 20091210
  3. PROPOFOL [Concomitant]
     Dosage: 10 MG/ML
     Route: 065
     Dates: start: 20091210
  4. OXYGEN [Concomitant]
     Route: 065
     Dates: start: 20091210
  5. DEXAMETHASONE [Concomitant]
     Dosage: 4MG/ML
     Route: 065
     Dates: start: 20091210
  6. ONDANSETRON [Concomitant]
     Dosage: 2 MG/ML
     Route: 065
     Dates: start: 20091210
  7. MIDAZOLAM [Concomitant]
     Dosage: 1 MG/ML
     Route: 065
     Dates: start: 20091210

REACTIONS (11)
  - Embedded device [Recovered/Resolved]
  - Pain [Recovered/Resolved]
  - Infertility female [Not Recovered/Not Resolved]
  - Pelvic pain [Recovered/Resolved]
  - Injury [Recovered/Resolved]
  - Emotional distress [None]
  - Device dislocation [Recovered/Resolved]
  - Mental disorder [None]
  - Depression [None]
  - Dysmenorrhoea [None]
  - Menstruation irregular [None]
